FAERS Safety Report 9072701 (Version 1)
Quarter: 2013Q1

REPORT INFORMATION
  Report Type: Report from Study
  Country: US (occurrence: US)
  Receive Date: 20130129
  Receipt Date: 20130129
  Transmission Date: 20140127
  Serious: No
  Sender: FDA-Public Use
  Company Number: US-ABBOTT-12P-163-0933917-00

PATIENT
  Sex: Female

DRUGS (3)
  1. HUMIRA 40 MG/0.8 ML PEN [Suspect]
     Indication: PSORIASIS
     Dates: start: 20080823, end: 20120402
  2. HUMIRA 40 MG/0.8 ML PEN [Suspect]
     Indication: PSORIATIC ARTHROPATHY
     Dates: start: 20120403
  3. LIPITOR [Concomitant]
     Indication: BLOOD CHOLESTEROL INCREASED

REACTIONS (3)
  - Rhinorrhoea [Recovered/Resolved]
  - Nasopharyngitis [Recovered/Resolved]
  - Pain in extremity [Not Recovered/Not Resolved]
